FAERS Safety Report 9203711 (Version 1)
Quarter: 2013Q1

REPORT INFORMATION
  Report Type: Spontaneous
  Country: US (occurrence: None)
  Receive Date: 20130329
  Receipt Date: 20130329
  Transmission Date: 20140127
  Serious: Yes (Hospitalization)
  Sender: FDA-Public Use
  Company Number: 09-AUR-08895

PATIENT
  Age: 58 Year
  Sex: Female

DRUGS (7)
  1. SIMVASTATIN (SIMVASTATIN) [Suspect]
     Indication: PRODUCT USED FOR UNKNOWN INDICATION
     Dates: start: 20080225
  2. FLUOXETINE (FLUOXETINE) [Suspect]
     Indication: PRODUCT USED FOR UNKNOWN INDICATION
     Dates: start: 20080120, end: 20080224
  3. ZOPICLONE (ZOPICLONE) [Suspect]
     Indication: PRODUCT USED FOR UNKNOWN INDICATION
  4. DEPAKOTE (VALPROATE SEMISODIUM) [Suspect]
     Indication: PRODUCT USED FOR UNKNOWN INDICATION
     Route: 048
  5. SEROQUEL (QUETIAPINE FUMARATE) [Suspect]
     Indication: ANXIETY
     Route: 048
  6. SEROQUEL (QUETIAPINE FUMARATE) [Suspect]
     Indication: DEPRESSION
     Route: 048
  7. CLOMIPRAMINE (CLOMIPRAMINE) [Suspect]
     Indication: PRODUCT USED FOR UNKNOWN INDICATION
     Dates: start: 1983, end: 20071210

REACTIONS (21)
  - Drug withdrawal syndrome [None]
  - Thinking abnormal [None]
  - Abnormal behaviour [None]
  - Nightmare [None]
  - Visual impairment [None]
  - Balance disorder [None]
  - Skin exfoliation [None]
  - Suicidal ideation [None]
  - Libido increased [None]
  - Euphoric mood [None]
  - Depression [None]
  - Orthostatic hypotension [None]
  - Heart rate irregular [None]
  - Heart rate increased [None]
  - Extrasystoles [None]
  - Palpitations [None]
  - Somnolence [None]
  - Sensory disturbance [None]
  - Anxiety [None]
  - Depressed mood [None]
  - Nervous system disorder [None]
